FAERS Safety Report 23351442 (Version 1)
Quarter: 2023Q4

REPORT INFORMATION
  Report Type: Report from Study
  Country: US (occurrence: US)
  Receive Date: 20231229
  Receipt Date: 20231229
  Transmission Date: 20240109
  Serious: Yes (Hospitalization)
  Sender: FDA-Public Use
  Company Number: US-GTI-000008

PATIENT
  Age: 57 Year

DRUGS (3)
  1. PYRIDOSTIGMINE [Suspect]
     Active Substance: PYRIDOSTIGMINE
     Indication: Myasthenia gravis
     Route: 065
  2. PREDNISONE [Suspect]
     Active Substance: PREDNISONE
     Indication: Myasthenia gravis
     Route: 065
  3. PREDNISONE [Suspect]
     Active Substance: PREDNISONE
     Indication: Myasthenia gravis
     Route: 065

REACTIONS (2)
  - Substance-induced psychotic disorder [Recovered/Resolved]
  - Delusion [Recovered/Resolved]
